FAERS Safety Report 9373284 (Version 1)
Quarter: 2013Q2

REPORT INFORMATION
  Report Type: Spontaneous
  Country: US (occurrence: US)
  Receive Date: 20130627
  Receipt Date: 20130627
  Transmission Date: 20140414
  Serious: Yes (Other)
  Sender: FDA-Public Use
  Company Number: US-GLAXOSMITHKLINE-A1028447A

PATIENT
  Age: 85 Year
  Sex: Female

DRUGS (3)
  1. ADVAIR [Suspect]
     Indication: ASTHMA
     Dates: start: 201306, end: 201306
  2. FOSAMAX [Concomitant]
  3. OTHER MEDICATIONS [Concomitant]

REACTIONS (8)
  - Glaucoma [Recovering/Resolving]
  - Nocturnal dyspnoea [Recovering/Resolving]
  - Dizziness [Recovering/Resolving]
  - Visual impairment [Recovering/Resolving]
  - Arthralgia [Recovering/Resolving]
  - Back pain [Recovering/Resolving]
  - Arthralgia [Recovering/Resolving]
  - Drug administration error [Unknown]
